FAERS Safety Report 7672102-8 (Version None)
Quarter: 2011Q3

REPORT INFORMATION
  Report Type: 
  Country: None (occurrence: None)
  Receive Date: 20110809
  Receipt Date: 20110801
  Transmission Date: 20111222
  Serious: Yes (Other)
  Sender: FDA-Public Use
  Company Number: PHHY2011US48747

PATIENT
  Sex: Female
  Weight: 72.109 kg

DRUGS (5)
  1. FEMARA [Suspect]
     Indication: METASTASES TO BONE
  2. FEMARA [Suspect]
     Indication: BREAST CANCER
     Dosage: 2.5 MG DAILY
     Route: 048
     Dates: start: 20110401
  3. ASPIRIN [Concomitant]
  4. ZOMETA [Concomitant]
     Dates: start: 20110401
  5. METHADONE HYDROCHLORIDE [Concomitant]
     Dates: start: 20110401

REACTIONS (14)
  - WEIGHT DECREASED [None]
  - COUGH [None]
  - CHEST PAIN [None]
  - VISUAL ACUITY REDUCED [None]
  - CHILLS [None]
  - LYMPHOEDEMA [None]
  - FATIGUE [None]
  - HOT FLUSH [None]
  - DEAFNESS [None]
  - HYPOKALAEMIA [None]
  - NIGHT SWEATS [None]
  - STRESS [None]
  - BONE NEOPLASM [None]
  - BACK PAIN [None]
